FAERS Safety Report 9363482 (Version 1)
Quarter: 2013Q2

REPORT INFORMATION
  Report Type: Report from Study
  Country: US (occurrence: US)
  Receive Date: 20130624
  Receipt Date: 20130624
  Transmission Date: 20140414
  Serious: Yes (Hospitalization)
  Sender: FDA-Public Use
  Company Number: US-BAYER-2013-076753

PATIENT
  Age: 78 Year
  Sex: Male
  Weight: 89.36 kg

DRUGS (7)
  1. XARELTO [Suspect]
     Indication: CEREBROVASCULAR ACCIDENT PROPHYLAXIS
     Dosage: 15 MG, QD
     Route: 048
     Dates: start: 20130610
  2. XARELTO [Suspect]
     Indication: ATRIAL FIBRILLATION
     Dosage: 20 MG, QD
     Route: 048
     Dates: start: 201304, end: 201305
  3. ACETYLSALICYLIC ACID({=100 MG) [Suspect]
     Dosage: 81 MG, QD
     Route: 048
     Dates: end: 20130611
  4. ALDACTAZIDE [Concomitant]
     Route: 065
  5. TOPROL XL [Concomitant]
     Indication: HEART RATE
     Dosage: 50 MG, UNK
     Route: 065
     Dates: start: 201304
  6. ZOCOR [Concomitant]
     Dosage: 40 MG, UNK
     Route: 048
  7. LISINOPRIL [Concomitant]
     Dosage: 20 MG, UNK
     Route: 065

REACTIONS (3)
  - Cardiac disorder [Recovered/Resolved]
  - Incision site haemorrhage [Recovered/Resolved]
  - Product quality issue [None]
